FAERS Safety Report 7212170-0 (Version None)
Quarter: 2010Q4

REPORT INFORMATION
  Report Type: 
  Country: None (occurrence: None)
  Receive Date: 20101227
  Receipt Date: 20101210
  Transmission Date: 20110411
  Serious: Yes (Hospitalization)
  Sender: FDA-Public Use
  Company Number: 1000017837

PATIENT
  Age: 87 Year
  Sex: Male

DRUGS (6)
  1. ESCITALOPRAM [Suspect]
     Dosage: 5 MG, AS REQUIRED, ORAL
     Route: 048
     Dates: end: 20101103
  2. RAMIPRIL [Suspect]
     Dosage: 10 MG (10 MG, 1 IN 1 D)
     Dates: end: 20101103
  3. CHRONADALATE LP (NIFEDIPINE) (TABLETS) [Suspect]
     Dosage: 30 MG (30 MG, 1 IN 1 D), ORAL
     Route: 048
     Dates: end: 20101103
  4. INIPOMP (PANTOPRAZOLE SODIUM) (TABLETS) [Suspect]
     Dosage: 40 MG, ORAL
     Route: 048
     Dates: end: 20101103
  5. EFFERALGAN (PARACETAMOL) (1 GRAM) [Suspect]
     Dosage: 3 G (1 GM, 3 IN 1 D), ORAL
     Route: 048
     Dates: end: 20101103
  6. DICLOFENAC SODIUM [Suspect]
     Dosage: 1 DOSAGE FORMS, AS REQUIRED, CUTANEOUS
     Route: 003
     Dates: end: 20101103

REACTIONS (2)
  - BONE MARROW FAILURE [None]
  - PANCYTOPENIA [None]
